FAERS Safety Report 9814706 (Version 1)
Quarter: 2014Q1

REPORT INFORMATION
  Report Type: Spontaneous
  Country: US (occurrence: US)
  Receive Date: 20140113
  Receipt Date: 20140113
  Transmission Date: 20141002
  Serious: Yes (Hospitalization)
  Sender: FDA-Public Use
  Company Number: US-SANOFI-AVENTIS-2013SA006747

PATIENT
  Age: 69 Year
  Sex: Male
  Weight: 85.72 kg

DRUGS (12)
  1. DOCETAXEL [Suspect]
     Indication: NON-SMALL CELL LUNG CANCER
     Route: 051
     Dates: start: 20121031
  2. INVESTIGATIONAL DRUG [Suspect]
     Indication: NON-SMALL CELL LUNG CANCER
  3. ACEBUTOLOL HYDROCHLORIDE [Concomitant]
     Indication: HYPERTENSION
     Route: 048
     Dates: start: 2002
  4. XANAX [Concomitant]
     Indication: DEPRESSION
     Route: 048
     Dates: start: 1997, end: 20121026
  5. KLONOPIN [Concomitant]
     Indication: DEPRESSION
     Dosage: THRICE IN ADAY
     Route: 048
     Dates: start: 20121026
  6. ROXICODONE [Concomitant]
     Indication: FLANK PAIN
     Route: 048
     Dates: start: 20120531, end: 20121025
  7. ACETAMINOPHEN W/OXYCODONE [Concomitant]
     Indication: FLANK PAIN
     Dosage: 10-325 MG EVERY 4 HOURS
     Dates: start: 20121025
  8. FLUTICASONE PROPIONATE [Concomitant]
     Indication: ALLERGIC SINUSITIS
     Route: 045
     Dates: start: 201110
  9. JANUMET [Concomitant]
     Indication: TYPE 2 DIABETES MELLITUS
     Dosage: 50 MG TWICE IN A DAY?100 MG TWICE IN A DAY
     Route: 048
     Dates: start: 201110
  10. JANUMET [Concomitant]
     Indication: TYPE 2 DIABETES MELLITUS
     Dates: start: 201110
  11. BC POWDER [Concomitant]
     Indication: PAIN
     Dates: start: 1970
  12. BENAZEPRIL [Concomitant]

REACTIONS (2)
  - Constipation [Recovered/Resolved]
  - Abdominal pain [Recovered/Resolved]
